FAERS Safety Report 6169601-7 (Version None)
Quarter: 2009Q2

REPORT INFORMATION
  Report Type: 
  Country: None (occurrence: None)
  Receive Date: 20090428
  Receipt Date: 20090423
  Transmission Date: 20091009
  Serious: Yes (Death, Hospitalization)
  Sender: FDA-Public Use
  Company Number: FR-BRISTOL-MYERS SQUIBB COMPANY-14600480

PATIENT
  Age: 63 Year
  Sex: Female

DRUGS (8)
  1. GLUCOPHAGE [Suspect]
     Indication: TYPE 2 DIABETES MELLITUS
     Dosage: LONG TERM TREATMENT
     Route: 048
  2. UMULINE ZINC COMPOSE [Concomitant]
  3. SOTALEX [Concomitant]
  4. KARDEGIC [Concomitant]
  5. PLAVIX [Concomitant]
  6. LASIX [Concomitant]
  7. RENITEC [Concomitant]
  8. CORVASAL [Concomitant]

REACTIONS (7)
  - ANOREXIA [None]
  - ASTHENIA [None]
  - DIARRHOEA [None]
  - LACTIC ACIDOSIS [None]
  - OVERDOSE [None]
  - RENAL FAILURE ACUTE [None]
  - VOMITING [None]
